FAERS Safety Report 9527706 (Version 1)
Quarter: 2013Q3

REPORT INFORMATION
  Report Type: Spontaneous
  Country: US (occurrence: None)
  Receive Date: 20130913
  Receipt Date: 20130913
  Transmission Date: 20140515
  Serious: Yes (Disabling)
  Sender: FDA-Public Use
  Company Number: None

PATIENT
  Age: 39 Year
  Sex: Female

DRUGS (4)
  1. PROPRANOLOL [Suspect]
     Indication: TACHYCARDIA
     Route: 048
     Dates: start: 20110215, end: 20130830
  2. XANEX [Concomitant]
  3. COUMADIN [Concomitant]
  4. IBUPROFEN [Concomitant]

REACTIONS (6)
  - Weight increased [None]
  - Blood cholesterol increased [None]
  - Hypertension [None]
  - Depression [None]
  - Drug ineffective [None]
  - Migraine [None]
